FAERS Safety Report 5886685-1 (Version None)
Quarter: 2008Q3

REPORT INFORMATION
  Report Type: 
  Country: None (occurrence: None)
  Receive Date: 20080917
  Receipt Date: 20080910
  Transmission Date: 20090109
  Serious: Yes (Life-Threatening)
  Sender: FDA-Public Use
  Company Number: PHHY2008FR20933

PATIENT
  Sex: Male

DRUGS (1)
  1. GLEEVEC [Suspect]
     Indication: CHRONIC MYELOID LEUKAEMIA
     Dosage: 400 MG PER DAY
     Dates: start: 20060601

REACTIONS (4)
  - EXERESIS [None]
  - GASTRIC CANCER [None]
  - IRON DEFICIENCY ANAEMIA [None]
  - TUMOUR HAEMORRHAGE [None]
